FAERS Safety Report 19861098 (Version 1)
Quarter: 2021Q3

REPORT INFORMATION
  Report Type: Spontaneous
  Country: US (occurrence: US)
  Receive Date: 20210920
  Receipt Date: 20210920
  Transmission Date: 20211014
  Serious: No
  Sender: FDA-Public Use
  Company Number: None

PATIENT
  Sex: Female

DRUGS (1)
  1. ICATIBANT ACETATE ++ SYR (3?PA 30MG/3ML TEVA PHARMACEUTICALS USA [Suspect]
     Active Substance: ICATIBANT ACETATE
     Indication: PRODUCT USED FOR UNKNOWN INDICATION
     Dosage: INJECT UNDER SKIN IN ABDOMINAL AREA AS NEEDED  FOR ATTACKS
     Route: 058
     Dates: start: 20210909

REACTIONS (4)
  - Injection site pain [None]
  - Injection site erythema [None]
  - Therapeutic product effect decreased [None]
  - Product substitution issue [None]
